FAERS Safety Report 6250285-4 (Version None)
Quarter: 2009Q2

REPORT INFORMATION
  Report Type: 
  Country: None (occurrence: None)
  Receive Date: 20090626
  Receipt Date: 20090626
  Transmission Date: 20091009
  Serious: No
  Sender: FDA-Public Use
  Company Number: None

PATIENT

DRUGS (3)
  1. HYDROCODONE BITARTRATE [Suspect]
     Indication: TONSIL CANCER
     Dates: start: 20090327
  2. HYDROCODONE BITARTRATE [Suspect]
     Indication: TONSIL CANCER
     Dates: start: 20090508
  3. VICODIN [Suspect]

REACTIONS (4)
  - ABDOMINAL PAIN UPPER [None]
  - INADEQUATE ANALGESIA [None]
  - NAUSEA [None]
  - PRODUCT SUBSTITUTION ISSUE [None]
